FAERS Safety Report 11524101 (Version 1)
Quarter: 2015Q3

REPORT INFORMATION
  Report Type: Spontaneous
  Country: US (occurrence: US)
  Receive Date: 20150903
  Receipt Date: 20150903
  Transmission Date: 20151125
  Serious: No
  Sender: FDA-Public Use
  Company Number: US-ELI_LILLY_AND_COMPANY-US201002003131

PATIENT
  Age: 52 Year
  Sex: Male

DRUGS (4)
  1. HUMALOG [Suspect]
     Active Substance: INSULIN LISPRO
     Dosage: 16 U, 2/D
     Dates: start: 200908
  2. HUMALOG [Suspect]
     Active Substance: INSULIN LISPRO
     Dosage: 21 U, DAILY (1/D)
     Dates: start: 200908
  3. HUMALOG [Suspect]
     Active Substance: INSULIN LISPRO
     Dosage: 16 U, 2/D
     Dates: start: 200908
  4. HUMALOG [Suspect]
     Active Substance: INSULIN LISPRO
     Dosage: 21 U, DAILY (1/D)
     Dates: start: 200908

REACTIONS (1)
  - Injection site pain [Recovered/Resolved]

NARRATIVE: CASE EVENT DATE: 20091212
